FAERS Safety Report 23644966 (Version 1)
Quarter: 2024Q1

REPORT INFORMATION
  Report Type: Other
  Country: DE (occurrence: None)
  Receive Date: 20240318
  Receipt Date: 20240318
  Transmission Date: 20240410
  Serious: Yes (Hospitalization, Other)
  Sender: FDA-Public Use
  Company Number: DE-ROCHE-2364531

PATIENT
  Age: 51 Year
  Sex: Male

DRUGS (16)
  1. OCREVUS [Suspect]
     Active Substance: OCRELIZUMAB
     Indication: Primary progressive multiple sclerosis
     Dosage: NEXT INFUSION: 18/JUL/2019?370 DAYS, 600MG
     Route: 042
     Dates: start: 20190704
  2. OCREVUS [Suspect]
     Active Substance: OCRELIZUMAB
     Route: 042
     Dates: start: 201907
  3. OCREVUS [Suspect]
     Active Substance: OCRELIZUMAB
     Route: 042
  4. OCREVUS [Suspect]
     Active Substance: OCRELIZUMAB
     Route: 042
  5. OCREVUS [Suspect]
     Active Substance: OCRELIZUMAB
     Route: 042
  6. OCREVUS [Suspect]
     Active Substance: OCRELIZUMAB
     Route: 042
  7. NABIXIMOLS [Suspect]
     Active Substance: NABIXIMOLS
     Indication: Product used for unknown indication
     Dosage: 3 HUB - 0 - 5 PUFFS
     Route: 065
     Dates: start: 20191228
  8. METAMIZOLE [Concomitant]
     Active Substance: METAMIZOLE
     Dosage: ADDITIONALLY AS REQUIRED
  9. LIORESAL [Concomitant]
     Active Substance: BACLOFEN
  10. LIORESAL [Concomitant]
     Active Substance: BACLOFEN
  11. LIORESAL [Concomitant]
     Active Substance: BACLOFEN
  12. CHOLECALCIFEROL [Concomitant]
     Active Substance: CHOLECALCIFEROL
  13. FOLIC ACID [Concomitant]
     Active Substance: FOLIC ACID
  14. SIMVASTATIN [Concomitant]
     Active Substance: SIMVASTATIN
  15. CANDESARTAN [Concomitant]
     Active Substance: CANDESARTAN
  16. ASPIRIN [Concomitant]
     Active Substance: ASPIRIN

REACTIONS (25)
  - Loss of consciousness [Recovered/Resolved]
  - Urinary retention [Not Recovered/Not Resolved]
  - Intracranial aneurysm [Unknown]
  - Dysphagia [Not Recovered/Not Resolved]
  - Arthralgia [Unknown]
  - Antinuclear antibody increased [Not Recovered/Not Resolved]
  - Urinary tract disorder [Not Recovered/Not Resolved]
  - Tinnitus [Recovering/Resolving]
  - Visual impairment [Not Recovered/Not Resolved]
  - Scab [Not Recovered/Not Resolved]
  - Dizziness [Not Recovered/Not Resolved]
  - Astigmatism [Not Recovered/Not Resolved]
  - Pollakiuria [Not Recovered/Not Resolved]
  - Limb discomfort [Not Recovered/Not Resolved]
  - Tympanic membrane perforation [Recovering/Resolving]
  - Haemangioma [Not Recovered/Not Resolved]
  - Cataract [Not Recovered/Not Resolved]
  - Fall [Unknown]
  - Muscle spasticity [Recovered/Resolved]
  - Visual field defect [Not Recovered/Not Resolved]
  - Blood creatine phosphokinase increased [Not Recovered/Not Resolved]
  - Restlessness [Recovered/Resolved]
  - Initial insomnia [Recovered/Resolved]
  - Hepatitis A antibody positive [Not Recovered/Not Resolved]
  - Hepatitis A antibody positive [Not Recovered/Not Resolved]

NARRATIVE: CASE EVENT DATE: 20190701
